FAERS Safety Report 6396063-7 (Version None)
Quarter: 2009Q4

REPORT INFORMATION
  Report Type: 
  Country: None (occurrence: None)
  Receive Date: 20091006
  Receipt Date: 20090921
  Transmission Date: 20100525
  Serious: Yes (Other)
  Sender: FDA-Public Use
  Company Number: 20090425

PATIENT
  Age: 32 Year
  Sex: Male

DRUGS (1)
  1. VASOPRESSIN INJECTION, USP (0410-10) 20 UNITS/ML [Suspect]
     Indication: HYPOTENSION
     Dosage: 0.08 U/MIN INTRAVENOUS
     Route: 042

REACTIONS (2)
  - DIABETES INSIPIDUS [None]
  - HYPERNATRAEMIA [None]
